FAERS Safety Report 14202736 (Version 4)
Quarter: 2017Q4

REPORT INFORMATION
  Report Type: Report from Study
  Country: JP (occurrence: JP)
  Receive Date: 20171118
  Receipt Date: 20171129
  Transmission Date: 20180321
  Serious: Yes (Hospitalization)
  Sender: FDA-Public Use
  Company Number: JP-BAXTER-2017BAX038283

PATIENT
  Age: 25 Year
  Sex: Male

DRUGS (7)
  1. TAZOPIPE [Concomitant]
     Active Substance: PIPERACILLIN SODIUM\TAZOBACTAM SODIUM
     Indication: INFECTION
     Route: 042
     Dates: start: 20171104
  2. SODIUM CHLORIDE. [Concomitant]
     Active Substance: SODIUM CHLORIDE
     Indication: HYPONATRAEMIA
     Route: 042
     Dates: start: 20171103
  3. SYMPROIC [Concomitant]
     Active Substance: NALDEMEDINE
     Dosage: ADMINISTERED EVERY OTHER DAY OR THE DAY WHEN THE PATIENT DID NOT DEFECATE
     Route: 048
     Dates: start: 20171110
  4. ENDOXAN 1G [Suspect]
     Active Substance: CYCLOPHOSPHAMIDE
     Indication: SYNOVIAL SARCOMA
     Dosage: DAY 1, DOSE: 750 MG/M2
     Route: 065
     Dates: start: 20171103, end: 20171103
  5. ENDOXAN 1G [Suspect]
     Active Substance: CYCLOPHOSPHAMIDE
     Dosage: DAY 2, DOSE: 750 MG/M2
     Route: 065
     Dates: start: 20171104, end: 20171104
  6. MS CONTIN [Suspect]
     Active Substance: MORPHINE SULFATE
     Indication: SUPPORTIVE CARE
     Dosage: 80 MG PER DAY
     Route: 048
     Dates: start: 20171102
  7. SYMPROIC [Concomitant]
     Active Substance: NALDEMEDINE
     Indication: CONSTIPATION
     Route: 048
     Dates: start: 20171102, end: 20171105

REACTIONS (1)
  - Cytokine release syndrome [Recovered/Resolved]

NARRATIVE: CASE EVENT DATE: 20171107
